FAERS Safety Report 10498355 (Version 1)
Quarter: 2014Q4

REPORT INFORMATION
  Report Type: Spontaneous
  Country: ES (occurrence: ES)
  Receive Date: 20141006
  Receipt Date: 20141006
  Transmission Date: 20150528
  Serious: Yes (Other)
  Sender: FDA-Public Use
  Company Number: ES-TEVA-513603ISR

PATIENT
  Age: 35 Year
  Sex: Female

DRUGS (1)
  1. MOXIFLOXACIN [Suspect]
     Active Substance: MOXIFLOXACIN
     Indication: CONJUNCTIVITIS
     Dosage: 0.5 PERCENT
     Route: 065

REACTIONS (4)
  - Pain [Recovering/Resolving]
  - Pruritus [Recovering/Resolving]
  - Conjunctival hyperaemia [Recovering/Resolving]
  - Blindness [Recovering/Resolving]
